FAERS Safety Report 11572810 (Version 2)
Quarter: 2015Q4

REPORT INFORMATION
  Report Type: Spontaneous
  Country: US (occurrence: US)
  Receive Date: 20150916
  Receipt Date: 20151027
  Transmission Date: 20160304
  Serious: No
  Sender: FDA-Public Use
  Company Number: US-ELI_LILLY_AND_COMPANY-US200910004871

PATIENT
  Sex: Female

DRUGS (1)
  1. FORTEO [Suspect]
     Active Substance: TERIPARATIDE
     Indication: OSTEOPOROSIS
     Dosage: 20 UG, DAILY (1/D)
     Dates: start: 200904, end: 20101003

REACTIONS (7)
  - Cough [Not Recovered/Not Resolved]
  - Bronchiectasis [Unknown]
  - Malaise [Recovered/Resolved]
  - Gastric dilatation [Recovered/Resolved]
  - Rhinorrhoea [Unknown]
  - Middle insomnia [Unknown]
  - Injection site pain [Unknown]

NARRATIVE: CASE EVENT DATE: 2009
